FAERS Safety Report 18010003 (Version 1)
Quarter: 2020Q3

REPORT INFORMATION
  Report Type: Spontaneous
  Country: CN (occurrence: CN)
  Receive Date: 20200710
  Receipt Date: 20200710
  Transmission Date: 20201103
  Serious: Yes (Other)
  Sender: FDA-Public Use
  Company Number: CN-GLAXOSMITHKLINE-CN2020APC114612

PATIENT
  Age: 27 Year
  Sex: Female
  Weight: 67 kg

DRUGS (3)
  1. DEXAMETHASONE ACETATE [Suspect]
     Active Substance: DEXAMETHASONE ACETATE
     Indication: ANTI-INFECTIVE THERAPY
     Dosage: 10 MG
     Route: 042
  2. CEFUROXIME SODIUM. [Suspect]
     Active Substance: CEFUROXIME SODIUM
     Indication: ANTI-INFECTIVE THERAPY
     Dosage: UNK
  3. AZTREONAM. [Suspect]
     Active Substance: AZTREONAM
     Indication: ANTI-INFECTIVE THERAPY
     Dosage: 1 G, TID (1 G AT A TIME AND ONE TIME EVERY 8 HOURS)

REACTIONS (7)
  - Pruritus [Recovered/Resolved]
  - Pathogen resistance [Unknown]
  - Live birth [Unknown]
  - Drug resistance [Unknown]
  - Rubella [Unknown]
  - Hypersensitivity [Unknown]
  - Exposure during pregnancy [Unknown]
